FAERS Safety Report 10700687 (Version 1)
Quarter: 2014Q4

REPORT INFORMATION
  Report Type: Spontaneous
  Country: US (occurrence: None)
  Receive Date: 20141224
  Receipt Date: 20141224
  Transmission Date: 20150529
  Serious: Yes (Other)
  Sender: FDA-Public Use
  Company Number: PHEH2014US016458

PATIENT
  Age: 50 Year
  Sex: Female

DRUGS (1)
  1. FEMARA [Suspect]
     Active Substance: LETROZOLE
     Indication: BREAST CANCER STAGE IV
     Dates: start: 201012

REACTIONS (6)
  - Breast cancer stage IV [None]
  - Depressed mood [None]
  - Nausea [None]
  - Malignant neoplasm progression [None]
  - Stress [None]
  - Headache [None]
